FAERS Safety Report 17857944 (Version 1)
Quarter: 2020Q2

REPORT INFORMATION
  Report Type: Spontaneous
  Country: ES (occurrence: ES)
  Receive Date: 20200604
  Receipt Date: 20200604
  Transmission Date: 20200714
  Serious: Yes (Other)
  Sender: FDA-Public Use
  Company Number: ES-SA-2020SA136776

PATIENT

DRUGS (4)
  1. TRULICITY [Concomitant]
     Active Substance: DULAGLUTIDE
     Dosage: 1 MG
     Route: 065
  2. LANTUS [Suspect]
     Active Substance: INSULIN GLARGINE
     Indication: DIABETES MELLITUS
     Dosage: 42 IU
     Route: 058
  3. METFORMIN HYDROCHLORIDE. [Suspect]
     Active Substance: METFORMIN HYDROCHLORIDE
     Indication: DIABETES MELLITUS
     Dosage: UNK
     Route: 048
  4. TRULICITY [Concomitant]
     Active Substance: DULAGLUTIDE
     Dosage: 5 MG
     Route: 065

REACTIONS (2)
  - Renal injury [Recovering/Resolving]
  - Diabetes mellitus inadequate control [Recovering/Resolving]
